FAERS Safety Report 18781770 (Version 1)
Quarter: 2021Q1

REPORT INFORMATION
  Report Type: Spontaneous
  Country: US (occurrence: US)
  Receive Date: 20210125
  Receipt Date: 20210125
  Transmission Date: 20210419
  Serious: No
  Sender: FDA-Public Use
  Company Number: US-ALLERGAN-2045508US

PATIENT
  Age: 79 Year
  Sex: Female

DRUGS (2)
  1. SYSTANE (HYPROMELLOSE 2910 (4000 MPA.S)) [Concomitant]
     Active Substance: HYPROMELLOSE 2910 (4000 MPA.S)
  2. RESTASIS [Suspect]
     Active Substance: CYCLOSPORINE
     Indication: DRY EYE
     Dosage: UNK UNK, BID
     Route: 047
     Dates: start: 2020

REACTIONS (5)
  - Product storage error [Unknown]
  - Instillation site pain [Not Recovered/Not Resolved]
  - Wrong technique in product usage process [Unknown]
  - Punctal plug insertion [Recovered/Resolved]
  - Product complaint [Unknown]

NARRATIVE: CASE EVENT DATE: 2020
